FAERS Safety Report 4916968-0 (Version None)
Quarter: 2006Q1

REPORT INFORMATION
  Report Type: 
  Country: None (occurrence: None)
  Receive Date: 20060216
  Receipt Date: 20060216
  Transmission Date: 20060701
  Serious: Yes (Other)
  Sender: FDA-Public Use
  Company Number: None

PATIENT
  Sex: Female
  Weight: 56.6996 kg

DRUGS (2)
  1. ESTRADIOL [Suspect]
     Indication: RELAPSING-REMITTING MULTIPLE SCLEROSIS
     Dosage: 2 MG 1 PER DAY
     Dates: start: 20000101
  2. ESTRACE [Concomitant]

REACTIONS (2)
  - MENOMETRORRHAGIA [None]
  - PHARMACEUTICAL PRODUCT COMPLAINT [None]
